FAERS Safety Report 14384534 (Version 2)
Quarter: 2019Q1

REPORT INFORMATION
  Report Type: Spontaneous
  Country: FR (occurrence: FR)
  Receive Date: 20180115
  Receipt Date: 20190311
  Transmission Date: 20190417
  Serious: Yes (Hospitalization, Other)
  Sender: FDA-Public Use
  Company Number: FR-MYLANLABS-2018M1002872

PATIENT
  Age: 27 Year
  Sex: Female
  Weight: 36.5 kg

DRUGS (5)
  1. ETOPOSIDE. [Suspect]
     Active Substance: ETOPOSIDE
     Indication: PRODUCT USED FOR UNKNOWN INDICATION
     Dosage: 1380 MILLIGRAM
     Route: 042
     Dates: start: 20161108, end: 20170109
  2. CARBOPLATIN. [Suspect]
     Active Substance: CARBOPLATIN
     Indication: PRODUCT USED FOR UNKNOWN INDICATION
     Dosage: 1990 MILLIGRAM
     Route: 042
     Dates: start: 20161107, end: 20161220
  3. VINCRISTINE HOSPIRA [Suspect]
     Active Substance: VINCRISTINE
     Indication: PRODUCT USED FOR UNKNOWN INDICATION
     Dosage: 13.8 MILLIGRAM
     Route: 042
     Dates: start: 20161107, end: 20170109
  4. CISPLATIN. [Suspect]
     Active Substance: CISPLATIN
     Indication: PRODUCT USED FOR UNKNOWN INDICATION
     Dosage: 308 MILLIGRAM
     Route: 042
     Dates: start: 20161117, end: 20161231
  5. ENDOXAN                            /00021101/ [Suspect]
     Active Substance: CYCLOPHOSPHAMIDE
     Indication: PRODUCT USED FOR UNKNOWN INDICATION
     Dosage: 4180 MILLIGRAM
     Route: 042
     Dates: start: 20161126, end: 20170110

REACTIONS (1)
  - Acute myeloid leukaemia [Recovered/Resolved]

NARRATIVE: CASE EVENT DATE: 20171215
